FAERS Safety Report 13379950 (Version 1)
Quarter: 2017Q1

REPORT INFORMATION
  Report Type: Spontaneous
  Country: US (occurrence: US)
  Receive Date: 20170328
  Receipt Date: 20170328
  Transmission Date: 20170429
  Serious: Yes (Hospitalization)
  Sender: FDA-Public Use
  Company Number: US-ELI_LILLY_AND_COMPANY-US201703008672

PATIENT
  Age: 25 Year
  Sex: Female

DRUGS (1)
  1. PROZAC [Suspect]
     Active Substance: FLUOXETINE HYDROCHLORIDE
     Indication: PRODUCT USED FOR UNKNOWN INDICATION
     Dosage: UNK, UNKNOWN
     Route: 065

REACTIONS (4)
  - Cephalo-pelvic disproportion [Recovered/Resolved]
  - Maternal exposure before pregnancy [Recovered/Resolved]
  - Urticaria [Unknown]
  - Failed induction of labour [Recovered/Resolved]

NARRATIVE: CASE EVENT DATE: 19970403
